FAERS Safety Report 4785196-4 (Version None)
Quarter: 2005Q3

REPORT INFORMATION
  Report Type: 
  Country: None (occurrence: None)
  Receive Date: 20050930
  Receipt Date: 20050921
  Transmission Date: 20060218
  Serious: Yes (Hospitalization)
  Sender: FDA-Public Use
  Company Number: US-MERCK-0509USA03464

PATIENT
  Age: 66 Year
  Sex: Male

DRUGS (8)
  1. VIOXX [Suspect]
     Indication: OSTEOARTHRITIS
     Route: 048
     Dates: start: 20001001, end: 20010101
  2. VASOTEC [Concomitant]
     Indication: HYPERTENSION
     Route: 048
  3. VASOTEC [Concomitant]
     Indication: MICROALBUMINURIA
     Route: 048
  4. HUMULIN [Concomitant]
     Indication: DIABETES MELLITUS
     Route: 058
  5. HUMULIN [Concomitant]
     Route: 058
  6. NEURONTIN [Concomitant]
     Route: 048
  7. ASPIRIN [Concomitant]
     Route: 048
     Dates: start: 20010201
  8. AVANDIA [Concomitant]
     Indication: DIABETES MELLITUS
     Route: 048

REACTIONS (7)
  - BLOOD GLUCOSE INCREASED [None]
  - CERUMEN IMPACTION [None]
  - HYPERLIPIDAEMIA [None]
  - HYPOAESTHESIA [None]
  - ISCHAEMIC STROKE [None]
  - ONYCHOMYCOSIS [None]
  - SHOULDER PAIN [None]
